FAERS Safety Report 8778916 (Version 2)
Quarter: 2012Q4

REPORT INFORMATION
  Report Type: Report from Study
  Country: JP (occurrence: JP)
  Receive Date: 20120912
  Receipt Date: 20121025
  Transmission Date: 20130627
  Serious: Yes (Hospitalization)
  Sender: FDA-Public Use
  Company Number: PHHY2012JP078429

PATIENT
  Age: 80 Year
  Sex: Female
  Weight: 52 kg

DRUGS (18)
  1. EXELON [Suspect]
     Indication: DEMENTIA ALZHEIMER^S TYPE
     Dosage: 4.5 mg, daily
     Route: 062
     Dates: start: 20111226, end: 20120122
  2. EXELON [Suspect]
     Dosage: 9 mg, daily
     Route: 062
     Dates: start: 20120123, end: 20120220
  3. OPALMON [Concomitant]
     Indication: SPINAL OSTEOARTHRITIS
     Dosage: 15 ug, Daily
     Route: 048
  4. LYRICA [Concomitant]
     Indication: SPINAL OSTEOARTHRITIS
     Dosage: 150 mg, Daily
     Route: 048
  5. EVISTA [Concomitant]
     Indication: OSTEOPOROSIS
     Dosage: 60 mg, Daily
     Route: 048
  6. ALFACALCIDOL [Concomitant]
     Indication: OSTEOPOROSIS
     Dosage: 1 mg,  Daily
     Route: 050
  7. YOUCOBAL [Concomitant]
     Indication: DIABETIC NEUROPATHY
     Dosage: 1500 ug,  Daily
     Route: 048
  8. PARIET [Concomitant]
     Indication: GASTROOESOPHAGEAL REFLUX DISEASE
     Dosage: 10 mg,  Daily
     Route: 048
  9. NATRIX [Concomitant]
     Indication: HYPERTENSION
     Dosage: 1 mg,  Daily
     Route: 048
  10. MICARDIS [Concomitant]
     Indication: HYPERTENSION
     Dosage: 40 mg, Daily
     Route: 048
  11. CRESTOR [Concomitant]
     Indication: HYPERLIPIDAEMIA
     Dosage: 2.5 mg, Daily
     Route: 048
  12. WARFARIN POTASSIUM [Concomitant]
     Indication: ATRIAL FIBRILLATION
     Dosage: 2 mg,  Daily
     Route: 048
  13. MIGLITOL [Concomitant]
     Indication: DIABETES MELLITUS
     Dosage: 75 mg, Daily
     Route: 048
  14. DEPAS [Concomitant]
     Indication: INSOMNIA
     Dosage: 1 mg,  Daily
     Route: 048
  15. AMARYL [Concomitant]
     Indication: DIABETES MELLITUS
     Dosage: 1 mg,  Daily
     Route: 048
  16. MAGMITT KENEI [Concomitant]
     Indication: CONSTIPATION
     Dosage: 660 mg,  Daily
     Route: 048
  17. PRONON [Concomitant]
     Indication: ATRIAL FIBRILLATION
     Dosage: 150 mg, Daily
     Route: 048
  18. ARICEPT [Concomitant]
     Indication: DEMENTIA ALZHEIMER^S TYPE
     Dosage: 3 mg, Daily
     Route: 048
     Dates: start: 20111201, end: 20111212

REACTIONS (1)
  - Cardiac failure acute [Recovered/Resolved]
